FAERS Safety Report 14002638 (Version 3)
Quarter: 2017Q4

REPORT INFORMATION
  Report Type: Report from Study
  Country: None (occurrence: SE)
  Receive Date: 20170922
  Receipt Date: 20171003
  Transmission Date: 20180321
  Serious: Yes (Hospitalization)
  Sender: FDA-Public Use
  Company Number: SE-ABBVIE-17K-150-2108098-00

PATIENT
  Age: 69 Year
  Sex: Male

DRUGS (5)
  1. OXASCAND [Concomitant]
     Active Substance: OXAZEPAM
     Indication: SEDATIVE THERAPY
     Dosage: IN THE MORNING AND IN THE EVENING
  2. NITRAZEPAM [Concomitant]
     Active Substance: NITRAZEPAM
     Indication: INSOMNIA
  3. DUODOPA [Suspect]
     Active Substance: CARBIDOPA\LEVODOPA
     Indication: PARKINSON^S DISEASE
     Route: 050
     Dates: start: 20161017, end: 20161202
  4. DUODOPA [Suspect]
     Active Substance: CARBIDOPA\LEVODOPA
     Dosage: MD: 7 ML?CD: 3.6 ML/H?XD: 1.5 ML
     Route: 050
     Dates: start: 20161202, end: 201709
  5. DUODOPA [Suspect]
     Active Substance: CARBIDOPA\LEVODOPA
     Dosage: MD: 7 ML?CD: 3.8 ML/H?XD: 1.7 ML
     Route: 050
     Dates: start: 201709

REACTIONS (12)
  - Musculoskeletal stiffness [Recovered/Resolved]
  - Dyspnoea [Recovering/Resolving]
  - Hypoaesthesia [Recovering/Resolving]
  - Drug effect decreased [Recovered/Resolved]
  - Dysuria [Recovering/Resolving]
  - Medical device site pain [Recovering/Resolving]
  - Renal pain [Recovering/Resolving]
  - Pharyngeal hypoaesthesia [Recovering/Resolving]
  - Hyperkinesia [Recovering/Resolving]
  - Hyperkinesia [Not Recovered/Not Resolved]
  - Anxiety [Recovering/Resolving]
  - On and off phenomenon [Recovering/Resolving]

NARRATIVE: CASE EVENT DATE: 201709
